FAERS Safety Report 6310211-6 (Version None)
Quarter: 2009Q3

REPORT INFORMATION
  Report Type: 
  Country: None (occurrence: None)
  Receive Date: 20090814
  Receipt Date: 20090803
  Transmission Date: 20100115
  Serious: Yes (Death)
  Sender: FDA-Public Use
  Company Number: TW-ELI_LILLY_AND_COMPANY-TW200908000603

PATIENT

DRUGS (1)
  1. GEMZAR [Suspect]
     Indication: NON-HODGKIN'S LYMPHOMA
     Dosage: 800 MG/M2, OTHER (DAYS ONE AND EIGHT OF A FOUR WEEK CYCLE)
     Route: 042

REACTIONS (1)
  - CANDIDIASIS [None]
